FAERS Safety Report 16276616 (Version 1)
Quarter: 2019Q2

REPORT INFORMATION
  Report Type: Spontaneous
  Country: US (occurrence: US)
  Receive Date: 20190506
  Receipt Date: 20190506
  Transmission Date: 20190711
  Serious: Yes (Other)
  Sender: FDA-Public Use
  Company Number: US-PFIZER INC-2019184483

PATIENT
  Age: 50 Year
  Sex: Female

DRUGS (1)
  1. EFFEXOR XR [Suspect]
     Active Substance: VENLAFAXINE HYDROCHLORIDE
     Indication: BIPOLAR DISORDER
     Dosage: UNK

REACTIONS (5)
  - Withdrawal syndrome [Unknown]
  - Feeling abnormal [Unknown]
  - Product use in unapproved indication [Unknown]
  - Suicidal ideation [Unknown]
  - Expired product administered [Unknown]
